FAERS Safety Report 11916915 (Version 4)
Quarter: 2016Q2

REPORT INFORMATION
  Report Type: Spontaneous
  Country: US (occurrence: US)
  Receive Date: 20160114
  Receipt Date: 20160421
  Transmission Date: 20160815
  Serious: No
  Sender: FDA-Public Use
  Company Number: US-PFIZER INC-2015473752

PATIENT
  Age: 79 Year
  Sex: Female
  Weight: 61 kg

DRUGS (8)
  1. VFEND [Suspect]
     Active Substance: VORICONAZOLE
     Indication: ASPERGILLUS INFECTION
     Dosage: 100 MG, DAILY
     Route: 048
     Dates: start: 20151216
  2. LEVOTHYROXINE. [Concomitant]
     Active Substance: LEVOTHYROXINE
     Indication: THYROID DISORDER
     Dosage: 0.75 UG, 1X/DAY
  3. MAGNESIUM [Interacting]
     Active Substance: MAGNESIUM
     Dosage: 250 MG, UNK
  4. MUCINEX DM [Suspect]
     Active Substance: DEXTROMETHORPHAN HYDROBROMIDE\GUAIFENESIN
     Indication: CHRONIC OBSTRUCTIVE PULMONARY DISEASE
     Dosage: 1200 MG, 2X/DAY
  5. VFEND [Interacting]
     Active Substance: VORICONAZOLE
     Dosage: 200 MG, 2X/DAY
     Route: 048
     Dates: start: 20151216
  6. ALBUTEROL. [Concomitant]
     Active Substance: ALBUTEROL
     Indication: DYSPNOEA
     Dosage: 0.83 %, 4X/DAY
  7. OXYBUTYNIN [Concomitant]
     Active Substance: OXYBUTYNIN
     Indication: MICTURITION URGENCY
     Dosage: 5 MG, 1X/DAY
  8. MELATONIN [Concomitant]
     Active Substance: MELATONIN
     Dosage: 3MG ONCE A DAY BEFORE BED

REACTIONS (11)
  - Asthenia [Recovered/Resolved]
  - Somnolence [Unknown]
  - Tremor [Recovered/Resolved]
  - Fatigue [Unknown]
  - Dizziness [Recovered/Resolved]
  - Malaise [Unknown]
  - Vision blurred [Unknown]
  - Cough [Unknown]
  - Drug interaction [Unknown]
  - Haemoptysis [Unknown]
  - Weight decreased [Unknown]
